FAERS Safety Report 18992132 (Version 1)
Quarter: 2021Q1

REPORT INFORMATION
  Report Type: Spontaneous
  Country: DE (occurrence: DE)
  Receive Date: 20210310
  Receipt Date: 20210310
  Transmission Date: 20210420
  Serious: Yes (Hospitalization)
  Sender: FDA-Public Use
  Company Number: DE-PFIZER INC-2021236635

PATIENT
  Age: 64 Year
  Sex: Female

DRUGS (4)
  1. PREGABALIN. [Suspect]
     Active Substance: PREGABALIN
     Dosage: 50 MG, 2X/DAY (1?0?1?0)
  2. DULOXETINE. [Concomitant]
     Active Substance: DULOXETINE
     Dosage: 60 MG, 2X/DAY (1?0?0?0 )
  3. OXYCODON [Interacting]
     Active Substance: OXYCODONE
     Dosage: 20 MG, 2X/DAY (1?0?1?0)
  4. LEVOTHYROXINE [LEVOTHYROXINE SODIUM] [Concomitant]
     Active Substance: LEVOTHYROXINE SODIUM
     Dosage: 50 UG, 1X/DAY (1?0?0?0)

REACTIONS (6)
  - Drug interaction [Recovered/Resolved]
  - Nausea [Recovered/Resolved]
  - Product prescribing error [Recovered/Resolved]
  - Retching [Recovered/Resolved]
  - Abdominal pain [Recovered/Resolved]
  - Glomerular filtration rate decreased [Unknown]
